FAERS Safety Report 6335475-4 (Version None)
Quarter: 2009Q3

REPORT INFORMATION
  Report Type: 
  Country: None (occurrence: None)
  Receive Date: 20090831
  Receipt Date: 20090826
  Transmission Date: 20100115
  Serious: Yes (Life-Threatening)
  Sender: FDA-Public Use
  Company Number: FR-ASTRAZENECA-2009SE09736

PATIENT
  Age: 6416 Day
  Sex: Male

DRUGS (1)
  1. LIDOCAINE [Suspect]
     Route: 042
     Dates: start: 20090814, end: 20090814

REACTIONS (4)
  - ACCIDENTAL OVERDOSE [None]
  - CONVULSION [None]
  - INCORRECT DOSE ADMINISTERED [None]
  - MEDICATION ERROR [None]
